FAERS Safety Report 18323346 (Version 1)
Quarter: 2020Q3

REPORT INFORMATION
  Report Type: Spontaneous
  Country: FR (occurrence: FR)
  Receive Date: 20200928
  Receipt Date: 20200928
  Transmission Date: 20201103
  Serious: Yes (Other)
  Sender: FDA-Public Use
  Company Number: NVSC2020FR258654

PATIENT
  Age: 71 Year
  Sex: Female
  Weight: 64 kg

DRUGS (6)
  1. PYOSTACINE [Suspect]
     Active Substance: PRISTINAMYCIN
     Indication: PULMONARY MASS
     Dosage: UNK UNK, Q6M
     Route: 065
     Dates: start: 202009
  2. ESTRADIOL. [Suspect]
     Active Substance: ESTRADIOL
     Indication: PRODUCT USED FOR UNKNOWN INDICATION
     Dosage: UNK
     Route: 065
  3. KARDEGIC [Concomitant]
     Active Substance: ASPIRIN DL-LYSINE
     Indication: PRODUCT USED FOR UNKNOWN INDICATION
     Dosage: UNK
     Route: 065
  4. PYOSTACINE [Suspect]
     Active Substance: PRISTINAMYCIN
     Indication: TOOTH DISORDER
     Dosage: UNK UNK, Q6M
     Route: 065
     Dates: start: 1985
  5. ALDACTONE [Concomitant]
     Active Substance: SPIRONOLACTONE
     Indication: PRODUCT USED FOR UNKNOWN INDICATION
     Dosage: UNK
     Route: 065
  6. DUROGESIC [Concomitant]
     Active Substance: FENTANYL
     Indication: PRODUCT USED FOR UNKNOWN INDICATION
     Dosage: UNK
     Route: 065

REACTIONS (16)
  - COVID-19 [Unknown]
  - Dyspepsia [Unknown]
  - Aptyalism [Unknown]
  - Abdominal distension [Unknown]
  - Dry eye [Unknown]
  - Gait disturbance [Unknown]
  - Angioedema [Unknown]
  - External ear disorder [Unknown]
  - Condition aggravated [Unknown]
  - Vasodilatation [Unknown]
  - Muscular weakness [Unknown]
  - Blister [Unknown]
  - Rash [Unknown]
  - Skin disorder [Unknown]
  - Skin exfoliation [Unknown]
  - Mucosal discolouration [Unknown]
